FAERS Safety Report 22198233 (Version 4)
Quarter: 2023Q2

REPORT INFORMATION
  Report Type: Spontaneous
  Country: JP (occurrence: JP)
  Receive Date: 20230411
  Receipt Date: 20230515
  Transmission Date: 20230721
  Serious: Yes (Other)
  Sender: FDA-Public Use
  Company Number: JP-PFIZER INC-PV202300064953

PATIENT
  Age: 95 Year
  Sex: Female
  Weight: 47.6 kg

DRUGS (7)
  1. XELJANZ [Suspect]
     Active Substance: TOFACITINIB CITRATE
     Indication: Rheumatoid arthritis
     Dosage: 5 MG, 1X/DAY
     Route: 048
     Dates: start: 20200229, end: 20221220
  2. URSO [Concomitant]
     Active Substance: URSODIOL
     Dosage: 2 DF, 2X/DAY
     Route: 048
  3. AMLODIPINE BESYLATE\TELMISARTAN [Concomitant]
     Active Substance: AMLODIPINE BESYLATE\TELMISARTAN
     Dosage: 1 DF, 1X/DAY
     Route: 048
  4. ALFACALCIDOL [Concomitant]
     Active Substance: ALFACALCIDOL
     Dosage: 1 DF, 1X/DAY
     Route: 048
  5. BIO-THREE [Concomitant]
     Active Substance: HERBALS
     Dosage: 1 DF, 2X/DAY
     Route: 048
  6. METHYLCOBALAMIN [Concomitant]
     Active Substance: METHYLCOBALAMIN
     Dosage: 1 DF, 3X/DAY
     Route: 048
  7. VITAMEDIN [BENFOTIAMINE;CYANOCOBALAMIN;PYRIDOXINE HYDROCHLORIDE] [Concomitant]
     Dosage: 1 DF, 2X/DAY
     Route: 048

REACTIONS (7)
  - Cardiac failure chronic [Unknown]
  - Chronic kidney disease [Unknown]
  - Left ventricular failure [Unknown]
  - Anaemia [Unknown]
  - Nephrogenic anaemia [Unknown]
  - Hypertensive heart disease [Unknown]
  - Oedema peripheral [Unknown]

NARRATIVE: CASE EVENT DATE: 20220101
